FAERS Safety Report 16864862 (Version 9)
Quarter: 2021Q1

REPORT INFORMATION
  Report Type: Report from Study
  Country: CA (occurrence: CA)
  Receive Date: 20190929
  Receipt Date: 20210316
  Transmission Date: 20210419
  Serious: Yes (Other)
  Sender: FDA-Public Use
  Company Number: PHHY2018CA014544

PATIENT
  Age: 45 Year
  Sex: Female

DRUGS (4)
  1. GILENYA [Suspect]
     Active Substance: FINGOLIMOD HYDROCHLORIDE
     Indication: RELAPSING-REMITTING MULTIPLE SCLEROSIS
     Dosage: 0.5 MG, QD
     Route: 048
     Dates: start: 20130820
  2. GILENYA [Suspect]
     Active Substance: FINGOLIMOD HYDROCHLORIDE
     Dosage: UNK
     Route: 048
     Dates: start: 20191101
  3. MAYZENT [Suspect]
     Active Substance: SIPONIMOD
     Indication: SECONDARY PROGRESSIVE MULTIPLE SCLEROSIS
     Dosage: UNK
     Route: 048
     Dates: start: 20201113, end: 20210309
  4. GILENYA [Suspect]
     Active Substance: FINGOLIMOD HYDROCHLORIDE
     Dosage: UNK, QD
     Route: 048
     Dates: start: 20200820, end: 20201112

REACTIONS (12)
  - Visual impairment [Unknown]
  - Cystitis [Unknown]
  - Gait disturbance [Unknown]
  - Muscle spasticity [Unknown]
  - Musculoskeletal stiffness [Unknown]
  - Lymphocyte count decreased [Unknown]
  - Drug ineffective [Unknown]
  - Balance disorder [Unknown]
  - Pain [Unknown]
  - Expanded disability status scale score increased [Unknown]
  - Precancerous cells present [Unknown]
  - Fall [Unknown]

NARRATIVE: CASE EVENT DATE: 20180208
